FAERS Safety Report 8654828 (Version 3)
Quarter: 2012Q4

REPORT INFORMATION
  Report Type: 
  Country: CA (occurrence: CA)
  Receive Date: 20120709
  Receipt Date: 20121114
  Transmission Date: 20130627
  Serious: Yes (Hospitalization)
  Sender: FDA-Public Use
  Company Number: CA-GLAXOSMITHKLINE-A0982727A

PATIENT
  Age: 75 Year
  Sex: Female
  Weight: 102.3 kg

DRUGS (18)
  1. ADVAIR [Suspect]
     Indication: ASTHMA
     Dosage: 1PUFF Twice per day
     Route: 055
     Dates: start: 1999
  2. SINGULAIR [Concomitant]
     Dosage: 10MG Unknown
     Route: 065
  3. VENTOLIN [Concomitant]
     Route: 065
  4. QVAR [Concomitant]
     Indication: BRONCHITIS CHRONIC
     Route: 065
  5. ZYLOPRIM [Concomitant]
     Dosage: 200MG Per day
     Route: 065
  6. IRON [Concomitant]
     Dosage: 300MG Twice per day
     Route: 065
  7. LECTOPAM [Concomitant]
     Dosage: 4.5MG Per day
     Route: 065
  8. CALCIUM [Concomitant]
     Dosage: 500MG Twice per day
  9. VITAMIN B [Concomitant]
     Dosage: 400IU Twice per day
     Route: 065
  10. VERAPAMIL SR [Concomitant]
     Dosage: 240MG Per day
     Route: 065
  11. VENLAFAXINE [Concomitant]
     Dosage: 150MG Per day
     Route: 065
  12. DOCUSATE [Concomitant]
     Dosage: 2TAB At night
     Route: 065
  13. DOMPERIDONE [Concomitant]
     Dosage: 10MG Three times per day
     Route: 065
  14. TYLENOL [Concomitant]
     Dosage: 500MG Twice per day
     Route: 065
  15. ESOMEPRAZOLE [Concomitant]
     Dosage: 40MG Per day
     Route: 065
  16. WARFARIN [Concomitant]
     Route: 065
  17. GRAVOL [Concomitant]
  18. GASTROLYTE [Concomitant]

REACTIONS (20)
  - Arrhythmia supraventricular [Unknown]
  - Cardiac fibrillation [Unknown]
  - Fall [Recovered/Resolved]
  - Injury [Recovered/Resolved]
  - Cardiac disorder [Unknown]
  - Dacryostenosis acquired [Unknown]
  - Dry mouth [Unknown]
  - Salivary gland mass [Unknown]
  - Oropharyngeal pain [Unknown]
  - Cough [Unknown]
  - Bronchitis [Unknown]
  - Surgery [Unknown]
  - Urinary tract infection [Unknown]
  - Vomiting [Unknown]
  - Parathyroid tumour [Not Recovered/Not Resolved]
  - Pyrexia [Unknown]
  - Anxiety [Unknown]
  - Aphonia [Unknown]
  - Muscular weakness [Unknown]
  - Tooth disorder [Unknown]
